FAERS Safety Report 7304769-8 (Version None)
Quarter: 2011Q1

REPORT INFORMATION
  Report Type: 
  Country: None (occurrence: None)
  Receive Date: 20110222
  Receipt Date: 20110209
  Transmission Date: 20110831
  Serious: No
  Sender: FDA-Public Use
  Company Number: US-PFIZER INC-US-WYE-H14311810

PATIENT
  Sex: Female
  Weight: 56.7 kg

DRUGS (7)
  1. VITAMIN A [Concomitant]
  2. PRISTIQ [Suspect]
     Indication: DEPRESSION
     Dosage: 50.0 MG, 1X/DAY
     Route: 048
     Dates: start: 20100317
  3. CALCIUM [Concomitant]
  4. ST. JOHN'S WORT [Concomitant]
  5. SERTRALINE HYDROCHLORIDE [Suspect]
     Indication: DEPRESSION
     Dosage: 200.0 MG, 1X/DAY
     Route: 048
     Dates: start: 20090501, end: 20100317
  6. COD-LIVER OIL [Concomitant]
  7. GLUCOSAMINE [Concomitant]

REACTIONS (5)
  - INFLUENZA LIKE ILLNESS [None]
  - HEADACHE [None]
  - NIGHTMARE [None]
  - FEELING ABNORMAL [None]
  - CHILLS [None]
